FAERS Safety Report 11190969 (Version 2)
Quarter: 2015Q3

REPORT INFORMATION
  Report Type: Spontaneous
  Country: US (occurrence: US)
  Receive Date: 20150615
  Receipt Date: 20150911
  Transmission Date: 20151125
  Serious: No
  Sender: FDA-Public Use
  Company Number: US-ASTRAZENECA-2015SE54764

PATIENT
  Age: 18034 Day
  Sex: Male

DRUGS (7)
  1. BYDUREON [Suspect]
     Active Substance: EXENATIDE
     Indication: TYPE 2 DIABETES MELLITUS
     Route: 058
     Dates: start: 20150224, end: 20150819
  2. LISINOPRIL. [Concomitant]
     Active Substance: LISINOPRIL
  3. VITAMIN D [Concomitant]
     Active Substance: CHOLECALCIFEROL
  4. METFORMIN [Concomitant]
     Active Substance: METFORMIN HYDROCHLORIDE
     Dosage: 500 DAILY
  5. PERCOCET [Concomitant]
     Active Substance: ACETAMINOPHEN\OXYCODONE HYDROCHLORIDE
     Dosage: 10/32 MG AS REQUIRED
  6. ATORVASTATIN [Concomitant]
     Active Substance: ATORVASTATIN
  7. CYCLOBENZAPRINE [Concomitant]
     Active Substance: CYCLOBENZAPRINE

REACTIONS (6)
  - Product quality issue [Unknown]
  - Underdose [Unknown]
  - Injection site extravasation [Unknown]
  - Abdominal mass [Recovering/Resolving]
  - Injection site haemorrhage [Unknown]
  - Injection site nodule [Unknown]

NARRATIVE: CASE EVENT DATE: 20150224
